FAERS Safety Report 5952571-1 (Version None)
Quarter: 2008Q4

REPORT INFORMATION
  Report Type: 
  Country: None (occurrence: None)
  Receive Date: 20081029
  Receipt Date: 20080625
  Transmission Date: 20090506
  Serious: Yes (Other)
  Sender: FDA-Public Use
  Company Number: 49917

PATIENT
  Age: 13 Year
  Sex: Male
  Weight: 56.6996 kg

DRUGS (3)
  1. METHOTREXATE [Suspect]
     Indication: CROHN'S DISEASE
     Dosage: 12.5 - 25MG SUBCUTANEOUSLY WEEKLY
     Route: 058
     Dates: start: 20080605
  2. METHOTREXATE [Suspect]
     Indication: CROHN'S DISEASE
     Dosage: 12.5 - 25MG SUBCUTANEOUSLY WEEKLY
     Route: 058
     Dates: start: 20080613
  3. METHOTREXATE [Suspect]
     Indication: CROHN'S DISEASE
     Dosage: 12.5 - 25MG SUBCUTANEOUSLY WEEKLY
     Route: 058
     Dates: start: 20080620

REACTIONS (2)
  - PARALYSIS [None]
  - RASH [None]
